FAERS Safety Report 19977249 (Version 3)
Quarter: 2021Q4

REPORT INFORMATION
  Report Type: Other
  Country: DE (occurrence: DE)
  Receive Date: 20211021
  Receipt Date: 20211229
  Transmission Date: 20220303
  Serious: Yes (Death, Other)
  Sender: FDA-Public Use
  Company Number: DE-MACLEODS PHARMA UK LTD-MAC2021033029

PATIENT

DRUGS (12)
  1. PANTOPRAZOLE SODIUM [Suspect]
     Active Substance: PANTOPRAZOLE SODIUM
     Indication: Product used for unknown indication
     Dosage: 40 MILLIGRAM, QD, START DATE: 03/2014, STOP DATE: 05/2015
     Route: 065
  2. RAMIPRIL [Suspect]
     Active Substance: RAMIPRIL
     Indication: Product used for unknown indication
     Dosage: 5 MILLIGRAM, BID, START DATE: 08/2013, STOP DTAE: 05/2015, (1 - 0 - 1)
     Route: 065
  3. AMLODIPINE [Suspect]
     Active Substance: AMLODIPINE BESYLATE
     Indication: Product used for unknown indication
     Dosage: 0.5 DOSAGE FORM, BID, START DATE: 09/2013, STOP DATE: 05/2015, (0.5-0-0.5)
     Route: 065
  4. ASPIRIN [Suspect]
     Active Substance: ASPIRIN
     Indication: Product used for unknown indication
     Dosage: 100 MILLIGRAM, START DATE: 08/2013, STOP DATE: 05/2015
     Route: 065
  5. TORSEMIDE [Suspect]
     Active Substance: TORSEMIDE
     Indication: Product used for unknown indication
     Dosage: 10 MILLIGRAM, QD, (1 - 0 - 0), START DATE: 10/2013, STOP DATE: 05/2015
     Route: 065
  6. SIMVASTATIN [Suspect]
     Active Substance: SIMVASTATIN
     Indication: Product used for unknown indication
     Dosage: 40 MILLIGRAM, QD, (0 - 0 - 1), START DATE, 01/2014 AND STOP DATE: 05/2015
     Route: 065
  7. MOVICOL [Suspect]
     Active Substance: POLYETHYLENE GLYCOL 3350\POTASSIUM CHLORIDE\SODIUM BICARBONATE\SODIUM CHLORIDE
     Indication: Product used for unknown indication
     Dosage: 1 DOSAGE FORM, QD, START DATE: 08/2013, STOP DATE: 05/2015
     Route: 065
  8. GABAPENTIN [Suspect]
     Active Substance: GABAPENTIN
     Indication: Product used for unknown indication
     Dosage: 300 MILLIGRAM, BID, START DATE: 03/2014 , STOP DATE: 05/2015, (1 - 0 - 1)
     Route: 065
  9. ACTRAPHANE [Suspect]
     Active Substance: INSULIN HUMAN
     Indication: Type 2 diabetes mellitus
     Dosage: 18 - 8, START DATE: 01/2014, STOP DATE: 05/2015
     Route: 065
  10. BACLOFEN [Suspect]
     Active Substance: BACLOFEN
     Indication: Product used for unknown indication
     Dosage: 25 MILLIGRAM, TID, 25MG (1 - 0.5 - 1), START DATE 04/2014 TO STOP DATE: 05/2015
     Route: 065
  11. FENTANYL [Suspect]
     Active Substance: FENTANYL
     Indication: Product used for unknown indication
     Dosage: 25 MILLIGRAM, ALL 3 DAYS, START DATE: 07/2014, STOP DATE: 05/2015
     Route: 065
  12. XARELTO [Suspect]
     Active Substance: RIVAROXABAN
     Indication: Product used for unknown indication
     Dosage: 15 MILLIGRAM, QD, (1 - 0 - 0), START DATE: 03/2014, STOP DATE: 05/2015
     Route: 065

REACTIONS (9)
  - Dehydration [Fatal]
  - Lactic acidosis [Fatal]
  - Sinusitis [Fatal]
  - Sepsis [Fatal]
  - Pneumonia aspiration [Fatal]
  - Septic shock [Fatal]
  - Renal failure [Fatal]
  - Urosepsis [Fatal]
  - Hyperglycaemia [Fatal]
